FAERS Safety Report 24072725 (Version 1)
Quarter: 2024Q3

REPORT INFORMATION
  Report Type: Spontaneous
  Country: US (occurrence: US)
  Receive Date: 20240710
  Receipt Date: 20240710
  Transmission Date: 20241017
  Serious: Yes (Death, Other)
  Sender: AUROBINDO
  Company Number: US-AUROBINDO-AUR-APL-2024-033078

PATIENT
  Age: 57 Year
  Sex: Male

DRUGS (4)
  1. AMANTADINE [Suspect]
     Active Substance: AMANTADINE
     Indication: Animal bite
     Dosage: UNK (MILWAUKEE PROTOCOL)
     Route: 065
  2. KETAMINE HYDROCHLORIDE [Suspect]
     Active Substance: KETAMINE HYDROCHLORIDE
     Indication: Animal bite
     Dosage: UNK (MILWAUKEE PROTOCOL)
     Route: 065
  3. MIDAZOLAM [Suspect]
     Active Substance: MIDAZOLAM
     Indication: Animal bite
     Dosage: UNK (MILWAUKEE PROTOCOL)
     Route: 065
  4. FAVIPIRAVIR [Suspect]
     Active Substance: FAVIPIRAVIR
     Indication: Animal bite
     Dosage: UNK (ON DAY 9)
     Route: 065

REACTIONS (1)
  - Drug ineffective [Fatal]
